FAERS Safety Report 14556117 (Version 1)
Quarter: 2018Q1

REPORT INFORMATION
  Report Type: Report from Study
  Country: DE (occurrence: DE)
  Receive Date: 20180221
  Receipt Date: 20180221
  Transmission Date: 20180509
  Serious: Yes (Other)
  Sender: FDA-Public Use
  Company Number: DE-ROCHE-2071566

PATIENT
  Age: 76 Year
  Sex: Male

DRUGS (2)
  1. PIXANTRONE [Suspect]
     Active Substance: PIXANTRONE
     Indication: DIFFUSE LARGE B-CELL LYMPHOMA
     Dosage: 98 MG ON DAY 1,8,15 OF EACH 28 D CYCLE
     Route: 042
     Dates: start: 20171106, end: 20180102
  2. OBINUTUZUMAB. [Suspect]
     Active Substance: OBINUTUZUMAB
     Indication: DIFFUSE LARGE B-CELL LYMPHOMA
     Dosage: 1000 MG FLAT DOSE ON DAY 1, 8, 15 OF CYCLE ONE AND DAY 1 OF SUBSEQUENT CYCLES.
     Route: 042
     Dates: start: 20171106, end: 20180102

REACTIONS (1)
  - Ascites [Unknown]

NARRATIVE: CASE EVENT DATE: 20180105
